FAERS Safety Report 23486453 (Version 1)
Quarter: 2024Q1

REPORT INFORMATION
  Report Type: Spontaneous
  Country: US (occurrence: None)
  Receive Date: 20240205
  Receipt Date: 20240205
  Transmission Date: 20240410
  Serious: No
  Sender: FDA-Public Use
  Company Number: None

PATIENT
  Sex: Male

DRUGS (6)
  1. VELETRI [Suspect]
     Active Substance: EPOPROSTENOL
     Indication: Pulmonary arterial hypertension
     Dosage: OTHER QUANTITY : MG/KG/MIN 87ML/24H;?
     Route: 042
     Dates: start: 202305
  2. SILDENAFIL CITRATE [Concomitant]
     Active Substance: SILDENAFIL CITRATE
  3. HEPARIN L/F SYR (3ML/SYR) [Concomitant]
  4. SODIUM CHLORIDE (1000ML/BAG) [Concomitant]
  5. OFEV [Concomitant]
     Active Substance: NINTEDANIB
  6. OPSUMIT [Concomitant]
     Active Substance: MACITENTAN

REACTIONS (1)
  - Nasal congestion [None]
